FAERS Safety Report 8442365 (Version 4)
Quarter: 2013Q4

REPORT INFORMATION
  Report Type: Report from Study
  Country: US (occurrence: US)
  Receive Date: 20120224
  Receipt Date: 20131108
  Transmission Date: 20140711
  Serious: Yes (Hospitalization, Other)
  Sender: FDA-Public Use
  Company Number: US-009507513-2012SP005035

PATIENT
  Sex: Male

DRUGS (5)
  1. RIBAVIRIN [Suspect]
     Indication: HEPATITIS C
     Dosage: UNK UNK, UNKNOWN
     Route: 065
     Dates: start: 20080208, end: 20080225
  2. RIBAVIRIN [Suspect]
     Dosage: UNK UNK, UNKNOWN
     Route: 065
     Dates: start: 20120223
  3. PEGASYS [Suspect]
     Indication: HEPATITIS C
     Dosage: UNK UNK, UNKNOWN
     Route: 065
     Dates: start: 20080208, end: 20080225
  4. PEGASYS [Suspect]
     Dosage: UNK UNK, UNKNOWN
     Route: 065
     Dates: start: 20120223
  5. COPEGUS [Suspect]
     Indication: HEPATITIS C
     Dosage: UNK UNK, UNKNOWN
     Route: 065
     Dates: start: 20080208, end: 20080225

REACTIONS (13)
  - Dehydration [Unknown]
  - Abdominal pain upper [Unknown]
  - Renal pain [Unknown]
  - Gait disturbance [Unknown]
  - Vomiting [Unknown]
  - Cold sweat [Unknown]
  - Irritable bowel syndrome [Unknown]
  - Dizziness [Unknown]
  - Blood potassium decreased [Unknown]
  - Asthenia [Unknown]
  - Decreased interest [Unknown]
  - Fall [Unknown]
  - Head injury [Unknown]
